FAERS Safety Report 9830695 (Version 2)
Quarter: 2014Q1

REPORT INFORMATION
  Report Type: Report from Study
  Country: CA (occurrence: CA)
  Receive Date: 20140120
  Receipt Date: 20140120
  Transmission Date: 20141002
  Serious: Yes (Other)
  Sender: FDA-Public Use
  Company Number: CA-ABBVIE-12P-028-1014327-00

PATIENT
  Sex: Female
  Weight: 68.1 kg

DRUGS (1)
  1. HUMIRA [Suspect]
     Indication: RHEUMATOID ARTHRITIS
     Dosage: UNKNOWN
     Route: 058
     Dates: start: 20080215, end: 201208

REACTIONS (5)
  - Osteoarthritis [Recovered/Resolved]
  - Skin discolouration [Not Recovered/Not Resolved]
  - Postoperative wound infection [Recovered/Resolved]
  - Poor peripheral circulation [Not Recovered/Not Resolved]
  - Cyanosis [Recovered/Resolved]
